FAERS Safety Report 4321099-7 (Version None)
Quarter: 2004Q1

REPORT INFORMATION
  Report Type: 
  Country: None (occurrence: None)
  Receive Date: 20040322
  Receipt Date: 20040322
  Transmission Date: 20041129
  Serious: Yes (Other)
  Sender: FDA-Public Use
  Company Number: None

PATIENT
  Age: 53 Year
  Sex: Female
  Weight: 113.3993 kg

DRUGS (1)
  1. ALLOPURINOL [Suspect]
     Indication: GOUT

REACTIONS (1)
  - MEDICATION ERROR [None]
